FAERS Safety Report 4635855-9 (Version None)
Quarter: 2005Q2

REPORT INFORMATION
  Report Type: 
  Country: None (occurrence: None)
  Receive Date: 20050413
  Receipt Date: 20050401
  Transmission Date: 20051028
  Serious: Yes (Hospitalization)
  Sender: FDA-Public Use
  Company Number: KII-2005-0015822

PATIENT
  Age: 47 Year
  Sex: Male

DRUGS (7)
  1. OXYCONTIN [Suspect]
     Indication: PAIN
     Dosage: ORAL
     Route: 048
  2. HYDROCODONE BITARTRATE + ACETAMINOPHEN [Suspect]
     Indication: PAIN
     Dosage: ORAL
  3. BENZODIAZEPINE DERIVATIVES () [Suspect]
     Dosage: ORAL
     Route: 048
  4. LITHIUM CARBONATE [Suspect]
     Dosage: ORAL
     Route: 048
  5. ANTIEPILEPTICS [Concomitant]
  6. SSRI [Concomitant]
  7. ANTIPSYCHOTICS [Concomitant]

REACTIONS (7)
  - BOWEL SOUNDS ABNORMAL [None]
  - CONFUSIONAL STATE [None]
  - COORDINATION ABNORMAL [None]
  - LETHARGY [None]
  - MENTAL STATUS CHANGES [None]
  - MULTIPLE DRUG OVERDOSE [None]
  - PUPIL FIXED [None]
